FAERS Safety Report 15124040 (Version 1)
Quarter: 2018Q3

REPORT INFORMATION
  Report Type: Spontaneous
  Country: GB (occurrence: GB)
  Receive Date: 20180710
  Receipt Date: 20180710
  Transmission Date: 20181010
  Serious: Yes (Hospitalization)
  Sender: FDA-Public Use
  Company Number: GB-TEVA-2018-GB-923293

PATIENT
  Age: 49 Year
  Sex: Male
  Weight: 110 kg

DRUGS (5)
  1. AMLODIPINE MALEATE [Concomitant]
     Active Substance: AMLODIPINE MALEATE
  2. BISOPROLOL FUMARATE. [Concomitant]
     Active Substance: BISOPROLOL FUMARATE
  3. RAMIPRIL. [Concomitant]
     Active Substance: RAMIPRIL
  4. TEICOPLANIN [Concomitant]
     Active Substance: TEICOPLANIN
     Indication: CELLULITIS
     Dosage: 800MG PLUS LOADING DOSE.
     Route: 042
  5. CLARITHROMYCIN. [Suspect]
     Active Substance: CLARITHROMYCIN
     Indication: CELLULITIS
     Dosage: 500 MILLIGRAM DAILY;
     Route: 065
     Dates: start: 20180517, end: 20180518

REACTIONS (1)
  - Dermatitis allergic [Recovered/Resolved]

NARRATIVE: CASE EVENT DATE: 20180517
